FAERS Safety Report 14232199 (Version 2)
Quarter: 2017Q4

REPORT INFORMATION
  Report Type: Spontaneous
  Country: BR (occurrence: BR)
  Receive Date: 20171128
  Receipt Date: 20171215
  Transmission Date: 20180321
  Serious: Yes (Other)
  Sender: FDA-Public Use
  Company Number: PHHY2017BR171724

PATIENT
  Age: 82 Year
  Sex: Female
  Weight: 57 kg

DRUGS (10)
  1. ENTRESTO [Suspect]
     Active Substance: SACUBITRIL\VALSARTAN
     Indication: CARDIAC DISORDER
     Dosage: 2 DF, BID
     Route: 048
     Dates: start: 20170809
  2. PURAN [Concomitant]
     Active Substance: LEVOTHYROXINE SODIUM
     Indication: HYPERTHYROIDISM
     Dosage: 1 DF, QD
     Route: 048
     Dates: start: 2004
  3. ANCORON [Concomitant]
     Active Substance: AMIODARONE HYDROCHLORIDE
     Indication: CARDIAC FAILURE
     Dosage: 1 DF, QD
     Route: 048
  4. LASIX [Concomitant]
     Active Substance: FUROSEMIDE
     Indication: PRODUCT USED FOR UNKNOWN INDICATION
     Dosage: UNK
     Route: 065
  5. XARELTO [Concomitant]
     Active Substance: RIVAROXABAN
     Indication: CARDIAC FAILURE
     Dosage: 1 DF, QD
     Route: 048
  6. ATENSINA [Concomitant]
     Active Substance: CLONIDINE
     Indication: PRODUCT USED FOR UNKNOWN INDICATION
     Dosage: UNK
     Route: 065
  7. ALDACTONE [Concomitant]
     Active Substance: SPIRONOLACTONE
     Indication: PRODUCT USED FOR UNKNOWN INDICATION
     Dosage: UNK
     Route: 065
  8. NEBILET [Concomitant]
     Active Substance: NEBIVOLOL
     Indication: PRODUCT USED FOR UNKNOWN INDICATION
     Dosage: UNK
     Route: 065
  9. CONCOR [Concomitant]
     Active Substance: BISOPROLOL FUMARATE
     Indication: CARDIAC FAILURE
     Dosage: 1 DF, QD
     Route: 048
  10. VASTAREL [Concomitant]
     Active Substance: TRIMETAZIDINE DIHYDROCHLORIDE
     Indication: PRODUCT USED FOR UNKNOWN INDICATION
     Dosage: UNK
     Route: 065

REACTIONS (6)
  - Arrhythmia [Recovering/Resolving]
  - Malaise [Recovering/Resolving]
  - Dyspnoea [Recovering/Resolving]
  - Blood pressure decreased [Recovering/Resolving]
  - Fluid retention [Recovering/Resolving]
  - Product use in unapproved indication [Unknown]

NARRATIVE: CASE EVENT DATE: 20171104
